FAERS Safety Report 13411360 (Version 3)
Quarter: 2025Q4

REPORT INFORMATION
  Report Type: Spontaneous
  Country: US (occurrence: US)
  Receive Date: 20170406
  Receipt Date: 20251127
  Transmission Date: 20260118
  Serious: No
  Sender: JOHNSON AND JOHNSON
  Company Number: US-JNJFOC-20170304490

PATIENT
  Sex: Male

DRUGS (12)
  1. RISPERDAL [Suspect]
     Active Substance: RISPERIDONE
     Indication: Intermittent explosive disorder
     Route: 048
     Dates: start: 20070621, end: 20071009
  2. RISPERDAL [Suspect]
     Active Substance: RISPERIDONE
     Indication: Affective disorder
     Route: 048
     Dates: start: 20070829
  3. RISPERDAL [Suspect]
     Active Substance: RISPERIDONE
     Route: 048
     Dates: start: 20071009, end: 20071023
  4. RISPERDAL [Suspect]
     Active Substance: RISPERIDONE
  5. RISPERDAL [Suspect]
     Active Substance: RISPERIDONE
  6. RISPERDAL [Suspect]
     Active Substance: RISPERIDONE
  7. INVEGA [Suspect]
     Active Substance: PALIPERIDONE
     Indication: Affective disorder
     Dosage: TAKE 1 AT BEDTIME
     Route: 048
     Dates: start: 20121029
  8. INVEGA [Suspect]
     Active Substance: PALIPERIDONE
     Indication: Intermittent explosive disorder
     Route: 048
     Dates: start: 20121107
  9. INVEGA [Suspect]
     Active Substance: PALIPERIDONE
     Indication: Homicidal ideation
     Route: 048
     Dates: start: 20121112
  10. INVEGA [Suspect]
     Active Substance: PALIPERIDONE
     Indication: Anger
     Route: 048
     Dates: start: 20121122, end: 20130117
  11. RISPERIDONE [Suspect]
     Active Substance: RISPERIDONE
     Indication: Affective disorder
     Dosage: 1 TABLET DAILY
     Route: 048
     Dates: start: 20070716
  12. RISPERIDONE [Suspect]
     Active Substance: RISPERIDONE
     Indication: Intermittent explosive disorder
     Dosage: 1 TABLET AT BEDTIME
     Route: 048
     Dates: start: 20070912

REACTIONS (2)
  - Gynaecomastia [Unknown]
  - Emotional disorder [Unknown]
